FAERS Safety Report 6544171-X (Version None)
Quarter: 2010Q1

REPORT INFORMATION
  Report Type: 
  Country: None (occurrence: None)
  Receive Date: 20100120
  Receipt Date: 20090827
  Transmission Date: 20100710
  Serious: No
  Sender: FDA-Public Use
  Company Number: US-ALLERGAN-0912038US

PATIENT
  Sex: Male

DRUGS (1)
  1. PRED MILD [Suspect]
     Indication: DRY EYE
     Dosage: 1 GTT, SINGLE
     Dates: start: 20090827, end: 20090827

REACTIONS (1)
  - EYE PAIN [None]
